FAERS Safety Report 6030178-8 (Version None)
Quarter: 2009Q1

REPORT INFORMATION
  Report Type: 
  Country: None (occurrence: None)
  Receive Date: 20090105
  Receipt Date: 20090105
  Transmission Date: 20090719
  Serious: Yes (Other)
  Sender: FDA-Public Use
  Company Number: None

PATIENT
  Age: 56 Year
  Sex: Female
  Weight: 99.7913 kg

DRUGS (2)
  1. ALENDRONATE SODIUM [Suspect]
     Indication: GASTRIC BYPASS
     Dosage: 1 X WEEKLY WEEKLY PO
     Route: 048
     Dates: start: 20081228, end: 20081228
  2. ALENDRONATE SODIUM [Suspect]
     Indication: OSTEOPENIA
     Dosage: 1 X WEEKLY WEEKLY PO
     Route: 048
     Dates: start: 20081228, end: 20081228

REACTIONS (2)
  - ARTHRALGIA [None]
  - MYALGIA [None]
